FAERS Safety Report 6875853-8 (Version None)
Quarter: 2010Q3

REPORT INFORMATION
  Report Type: 
  Country: None (occurrence: None)
  Receive Date: 20100727
  Receipt Date: 20080310
  Transmission Date: 20110219
  Serious: Yes (Hospitalization, Other)
  Sender: FDA-Public Use
  Company Number: US-PFIZER INC-2006109768

PATIENT
  Sex: Female
  Weight: 63.5 kg

DRUGS (17)
  1. CELEBREX [Suspect]
     Indication: OSTEOARTHRITIS
     Dates: start: 20030919, end: 20040227
  2. CELEBREX [Suspect]
     Indication: RHEUMATOID ARTHRITIS
  3. BEXTRA [Suspect]
     Indication: OSTEOARTHRITIS
     Dates: start: 20030919
  4. BEXTRA [Suspect]
     Indication: RHEUMATOID ARTHRITIS
  5. VIOXX [Suspect]
     Indication: OSTEOARTHRITIS
     Route: 048
     Dates: start: 20040208
  6. VIOXX [Suspect]
     Indication: RHEUMATOID ARTHRITIS
  7. DIGITEK [Concomitant]
     Indication: CARDIAC DISORDER
     Dates: start: 20030611, end: 20040429
  8. VALSARTAN [Concomitant]
     Indication: MYOCARDIAL INFARCTION
     Dates: start: 20040117
  9. VALSARTAN [Concomitant]
     Indication: CARDIAC DISORDER
  10. VALSARTAN [Concomitant]
     Indication: HYPERTENSION
  11. VALSARTAN [Concomitant]
     Indication: DIABETES MELLITUS
  12. CARTIA XT [Concomitant]
     Indication: CARDIAC DISORDER
     Dates: start: 20030623, end: 20040429
  13. CARTIA XT [Concomitant]
     Indication: HYPERTENSION
  14. LASIX [Concomitant]
     Indication: HYPERTENSION
     Dates: start: 20031002
  15. LASIX [Concomitant]
     Indication: CARDIAC DISORDER
  16. TRAMADOL HYDROCHLORIDE [Concomitant]
     Indication: PAIN
     Dates: start: 20030401
  17. PROPOXYPHENE NAPSYLATE W/ ACETAMINOPHEN [Concomitant]
     Indication: PAIN
     Dates: start: 20031013

REACTIONS (3)
  - CARDIAC FAILURE CONGESTIVE [None]
  - CORONARY ARTERY DISEASE [None]
  - MYOCARDIAL INFARCTION [None]
